FAERS Safety Report 6579233-4 (Version None)
Quarter: 2010Q1

REPORT INFORMATION
  Report Type: 
  Country: None (occurrence: None)
  Receive Date: 20100212
  Receipt Date: 20100209
  Transmission Date: 20100710
  Serious: Yes (Hospitalization)
  Sender: FDA-Public Use
  Company Number: FR-SANOFI-AVENTIS-2010SA007712

PATIENT
  Age: 38 Year
  Sex: Female
  Weight: 68 kg

DRUGS (9)
  1. RIFADIN [Suspect]
     Route: 042
     Dates: start: 20100111, end: 20100111
  2. CANCIDAS [Suspect]
     Indication: INFECTION PROPHYLAXIS
     Route: 042
     Dates: start: 20100109, end: 20100109
  3. CANCIDAS [Suspect]
     Route: 042
     Dates: start: 20100110
  4. RIMIFON [Suspect]
     Route: 042
     Dates: start: 20100111, end: 20100111
  5. MYAMBUTOL [Concomitant]
     Route: 042
     Dates: start: 20100111, end: 20100111
  6. VANCOMYCIN [Concomitant]
     Indication: COLECTOMY
     Dates: start: 20100109
  7. IMIPENEM AND CILASTATIN SODIUM [Concomitant]
     Indication: COLECTOMY
     Dates: start: 20100109
  8. ESOMEPRAZOLE [Concomitant]
     Indication: DRUG USE FOR UNKNOWN INDICATION
     Dates: start: 20100109
  9. DIPRIVAN [Concomitant]
     Indication: SEDATION
     Dates: start: 20100101, end: 20100110

REACTIONS (3)
  - CYTOLYTIC HEPATITIS [None]
  - HEPATITIS CHOLESTATIC [None]
  - MIXED LIVER INJURY [None]
